FAERS Safety Report 5940256-7 (Version None)
Quarter: 2008Q4

REPORT INFORMATION
  Report Type: 
  Country: None (occurrence: None)
  Receive Date: 20081030
  Receipt Date: 20081016
  Transmission Date: 20090506
  Serious: Yes (Other)
  Sender: FDA-Public Use
  Company Number: ALA_00195_2008

PATIENT
  Sex: Female

DRUGS (8)
  1. LEVBID 0.375 MG (NOT SPECIFIED) [Suspect]
     Indication: DRUG USE FOR UNKNOWN INDICATION
     Dosage: 0.375 MG QD ORAL), (CUT 0.375 MG TAB IN HALF ORAL)
     Route: 048
     Dates: start: 20081001, end: 20081015
  2. LEVBID 0.375 MG (NOT SPECIFIED) [Suspect]
     Indication: DRUG USE FOR UNKNOWN INDICATION
     Dosage: 0.375 MG QD ORAL), (CUT 0.375 MG TAB IN HALF ORAL)
     Route: 048
     Dates: start: 20081016
  3. PRILOSEC [Concomitant]
  4. XANAX [Concomitant]
  5. REGLAN [Concomitant]
  6. CARTIA XT /00489701/ [Concomitant]
  7. HYOSCYAMINE SULFATE [Concomitant]
  8. VITAMINS NOS [Concomitant]

REACTIONS (8)
  - ABDOMINAL PAIN UPPER [None]
  - BLINDNESS TRANSIENT [None]
  - HEADACHE [None]
  - INSOMNIA [None]
  - MUSCULAR WEAKNESS [None]
  - PAIN [None]
  - PERFORMANCE STATUS DECREASED [None]
  - THERAPEUTIC RESPONSE UNEXPECTED WITH DRUG SUBSTITUTION [None]
